FAERS Safety Report 8973627 (Version 2)
Quarter: 2013Q2

REPORT INFORMATION
  Report Type: Report from Study
  Country: DE (occurrence: DE)
  Receive Date: 20121219
  Receipt Date: 20130530
  Transmission Date: 20140414
  Serious: Yes (Hospitalization)
  Sender: FDA-Public Use
  Company Number: DE-JNJFOC-20121110323

PATIENT
  Age: 62 Year
  Sex: 0

DRUGS (1)
  1. SIMPONI [Suspect]
     Indication: ANKYLOSING SPONDYLITIS
     Route: 058
     Dates: start: 20111101, end: 20121127

REACTIONS (2)
  - Pneumonia [Recovered/Resolved]
  - Depression [Recovering/Resolving]
